FAERS Safety Report 10207225 (Version 1)
Quarter: 2014Q2

REPORT INFORMATION
  Report Type: Spontaneous
  Country: US (occurrence: US)
  Receive Date: 20140530
  Receipt Date: 20140530
  Transmission Date: 20141212
  Serious: No
  Sender: FDA-Public Use
  Company Number: US-GLAXOSMITHKLINE-A1025363A

PATIENT
  Age: 71 Year
  Sex: Male

DRUGS (11)
  1. VENTOLIN [Suspect]
     Indication: PNEUMONIA
     Dosage: 1PUFF AS REQUIRED
     Route: 055
     Dates: start: 20130502
  2. ALPRAZOLAM [Concomitant]
  3. ATORVASTATIN [Concomitant]
  4. BENAZEPRIL [Concomitant]
  5. CARVEDILOL [Concomitant]
  6. BABY ASPIRIN [Concomitant]
  7. NIASPAN [Concomitant]
  8. TAMSULOSIN [Concomitant]
  9. TRAZODONE [Concomitant]
  10. ULORIC [Concomitant]
  11. ZETIA [Concomitant]

REACTIONS (2)
  - Drug ineffective [Recovered/Resolved]
  - Product quality issue [Unknown]
